FAERS Safety Report 6993965-5 (Version None)
Quarter: 2010Q3

REPORT INFORMATION
  Report Type: 
  Country: None (occurrence: None)
  Receive Date: 20100917
  Receipt Date: 20100412
  Transmission Date: 20110219
  Serious: Yes (Other)
  Sender: FDA-Public Use
  Company Number: US-ASTRAZENECA-2010SE12712

PATIENT
  Sex: Male

DRUGS (5)
  1. SEROQUEL [Suspect]
     Route: 048
     Dates: start: 20090305
  2. OXYCODONE HCL AND ACETAMINOPHEN [Concomitant]
     Dosage: 5 MG -325 MG
     Dates: start: 20090317
  3. TRAZODONE HCL [Concomitant]
     Dates: start: 20090101
  4. METFORMIN [Concomitant]
     Dates: start: 20090101
  5. FLEXERIL [Concomitant]
     Dates: start: 20090101

REACTIONS (1)
  - TYPE 2 DIABETES MELLITUS [None]
